FAERS Safety Report 7478477-7 (Version None)
Quarter: 2011Q2

REPORT INFORMATION
  Report Type: 
  Country: None (occurrence: None)
  Receive Date: 20110513
  Receipt Date: 20100726
  Transmission Date: 20111010
  Serious: No
  Sender: FDA-Public Use
  Company Number: US-PFIZER INC-2010094155

PATIENT
  Sex: Male

DRUGS (2)
  1. CELEBREX [Suspect]
     Indication: ARTHRITIS
     Dosage: 200 MG, 2X/DAY
     Route: 048
  2. ETANERCEPT [Concomitant]
     Indication: ARTHRITIS
     Dosage: UNK

REACTIONS (4)
  - DRUG DOSE OMISSION [None]
  - MIGRAINE [None]
  - VOMITING [None]
  - HANGOVER [None]
